FAERS Safety Report 4484897-5 (Version None)
Quarter: 2004Q3

REPORT INFORMATION
  Report Type: 
  Country: None (occurrence: None)
  Receive Date: 20040921
  Receipt Date: 20030923
  Transmission Date: 20050211
  Serious: Yes (Other)
  Sender: FDA-Public Use
  Company Number: 163-20785-03090063

PATIENT
  Sex: Male
  Weight: 253 kg

DRUGS (9)
  1. THALOMID [Suspect]
     Indication: RENAL CANCER METASTATIC
     Dosage: 200 MG, DAILY, ORAL
     Route: 048
     Dates: start: 20030407, end: 20030606
  2. INTEFERON (INTERFERON) [Concomitant]
  3. COUMADIN [Concomitant]
  4. LOPID [Concomitant]
  5. PRAVACHOL [Concomitant]
  6. LOTENSIN HCT (CIBRADEX ^CIBA-GEIGY) [Concomitant]
  7. LOTREL 5/20 (LOTREL) (UNKNOWN) [Concomitant]
  8. CELEXA (CITALOPRAM HYDROBROMIDE) (UNKNOWN) [Concomitant]
  9. ASPIRIN [Concomitant]

REACTIONS (7)
  - ANAEMIA [None]
  - DEEP VEIN THROMBOSIS [None]
  - DYSPNOEA [None]
  - GINGIVAL PAIN [None]
  - PAIN IN EXTREMITY [None]
  - SKIN DESQUAMATION [None]
  - WHITE BLOOD CELL COUNT DECREASED [None]
